FAERS Safety Report 5137095-6 (Version None)
Quarter: 2006Q4

REPORT INFORMATION
  Report Type: 
  Country: None (occurrence: None)
  Receive Date: 20061030
  Receipt Date: 20060823
  Transmission Date: 20070319
  Serious: Yes (Death, Hospitalization)
  Sender: FDA-Public Use
  Company Number: PHNU2006DE02881

PATIENT
  Age: 59 Year
  Sex: Female
  Weight: 73 kg

DRUGS (10)
  1. HERCEPTIN [Concomitant]
     Dosage: 300 MG, QD
     Route: 065
     Dates: start: 20060816, end: 20060817
  2. VINORELBINE [Concomitant]
     Dosage: 55 MG, QD
     Route: 065
     Dates: start: 20060816, end: 20060817
  3. ALOXI [Concomitant]
     Route: 065
     Dates: start: 20060816
  4. DEXA [Concomitant]
     Dosage: 16 MG, UNK
     Route: 065
     Dates: start: 20060816
  5. KEVATRIL [Concomitant]
     Route: 065
  6. DEXAMETHASONE [Concomitant]
     Dosage: 8 MG, UNK
  7. FENTANYL [Concomitant]
     Indication: CANCER PAIN
     Dosage: UP TO 75 A?G/H
     Route: 062
     Dates: start: 20060812
  8. METAMIZOLE [Concomitant]
     Indication: CANCER PAIN
     Route: 048
     Dates: start: 20060812
  9. HALOPERIDOL [Concomitant]
     Route: 048
     Dates: start: 20060812
  10. ZOMETA [Suspect]
     Indication: METASTASES TO BONE
     Dosage: 4 MG, ONCE/SINGLE
     Route: 042
     Dates: start: 20060817, end: 20060817

REACTIONS (9)
  - ANXIETY [None]
  - BLOOD CREATININE INCREASED [None]
  - DYSPNOEA [None]
  - GENERAL PHYSICAL HEALTH DETERIORATION [None]
  - LUNG INFILTRATION [None]
  - MALIGNANT NEOPLASM PROGRESSION [None]
  - OXYGEN SATURATION DECREASED [None]
  - RENAL FAILURE ACUTE [None]
  - RESPIRATORY FAILURE [None]
